FAERS Safety Report 25660217 (Version 2)
Quarter: 2025Q3

REPORT INFORMATION
  Report Type: Spontaneous
  Country: EU (occurrence: EU)
  Receive Date: 20250808
  Receipt Date: 20250818
  Transmission Date: 20251020
  Serious: Yes (Hospitalization)
  Sender: MACLEODS
  Company Number: EU-MACLEODS PHARMA-MAC2025054531

PATIENT

DRUGS (1)
  1. HYDROCHLOROTHIAZIDE\OLMESARTAN MEDOXOMIL [Suspect]
     Active Substance: HYDROCHLOROTHIAZIDE\OLMESARTAN MEDOXOMIL
     Indication: Hypertension
     Route: 065

REACTIONS (5)
  - Gastrointestinal disorder [Recovering/Resolving]
  - Peptic ulcer [Recovered/Resolved]
  - Intestinal metaplasia [Recovering/Resolving]
  - Chronic gastritis [Recovering/Resolving]
  - Helicobacter infection [Recovered/Resolved]
